FAERS Safety Report 15776809 (Version 5)
Quarter: 2019Q3

REPORT INFORMATION
  Report Type: Spontaneous
  Country: US (occurrence: US)
  Receive Date: 20181231
  Receipt Date: 20190724
  Transmission Date: 20191004
  Serious: No
  Sender: FDA-Public Use
  Company Number: US-PFIZER INC-2018535802

PATIENT
  Age: 59 Year
  Sex: Male

DRUGS (2)
  1. METHOTREXATE. [Concomitant]
     Active Substance: METHOTREXATE
     Dosage: UNK
  2. XELJANZ XR [Suspect]
     Active Substance: TOFACITINIB CITRATE
     Indication: RHEUMATOID ARTHRITIS
     Dosage: 11 MG, DAILY (ONE TABLET EVERY DAY)
     Route: 048
     Dates: start: 2018

REACTIONS (5)
  - Condition aggravated [Unknown]
  - Sinusitis [Recovered/Resolved]
  - Fatigue [Unknown]
  - Product dose omission [Unknown]
  - Arthralgia [Recovering/Resolving]
